FAERS Safety Report 15069777 (Version 5)
Quarter: 2022Q1

REPORT INFORMATION
  Report Type: Report from Study
  Country: US (occurrence: US)
  Receive Date: 20180626
  Receipt Date: 20220117
  Transmission Date: 20220423
  Serious: Yes (Other)
  Sender: FDA-Public Use
  Company Number: US-ALEXION-17327

PATIENT
  Sex: Female
  Weight: 89.4 kg

DRUGS (17)
  1. STRENSIQ [Suspect]
     Active Substance: ASFOTASE ALFA
     Indication: Hypophosphatasia
     Dosage: 2 MG/KG, Q3W
     Route: 065
     Dates: start: 201602, end: 201802
  2. STRENSIQ [Suspect]
     Active Substance: ASFOTASE ALFA
     Dosage: UNK
     Route: 065
  3. ADVIL                              /00109201/ [Concomitant]
     Indication: Product used for unknown indication
     Dosage: 800 MG, TID PRN
     Route: 048
  4. ARMOUR THYROID [Concomitant]
     Active Substance: THYROID, PORCINE
     Dosage: 120 MG, UNK
     Route: 048
     Dates: start: 20180321, end: 20180424
  5. ARMOUR THYROID [Concomitant]
     Active Substance: THYROID, PORCINE
     Indication: Product used for unknown indication
     Dosage: 150 MG, QD
     Route: 048
  6. ARMOUR THYROID [Concomitant]
     Active Substance: THYROID, PORCINE
     Dosage: 30 MG, UNK
     Route: 048
     Dates: start: 20180321
  7. ATENOLOL [Concomitant]
     Active Substance: ATENOLOL
     Indication: Product used for unknown indication
     Dosage: 40 MG, QD
     Route: 048
  8. CANNABIDIOL [Concomitant]
     Active Substance: CANNABIDIOL
     Indication: Arthralgia
     Dosage: UNK
     Route: 065
  9. CANNABIDIOL [Concomitant]
     Active Substance: CANNABIDIOL
     Indication: Back pain
  10. CANNABIDIOL [Concomitant]
     Active Substance: CANNABIDIOL
     Indication: Pain in extremity
  11. FLEXERIL                           /00428402/ [Concomitant]
     Indication: Product used for unknown indication
     Dosage: 10 MG, PRN
     Route: 048
  12. FLONASE                            /00972202/ [Concomitant]
     Indication: Product used for unknown indication
     Dosage: 1 SPRAY INTO EACH NOSTRIL, QD
     Route: 045
  13. MOTRIN [Concomitant]
     Active Substance: IBUPROFEN
     Indication: Product used for unknown indication
     Dosage: 800 MG, TID PRN
     Route: 048
  14. NORPRAMIN                          /00043102/ [Concomitant]
     Indication: Product used for unknown indication
     Dosage: 25 MG, BID
     Route: 048
  15. PANTOPRAZOLE                       /01263204/ [Concomitant]
     Indication: Product used for unknown indication
     Dosage: 20 MG, BID
     Route: 048
  16. REQUIP [Concomitant]
     Active Substance: ROPINIROLE HYDROCHLORIDE
     Indication: Product used for unknown indication
     Dosage: UNK MG, QD
     Route: 048
  17. VOLTAREN                           /00372302/ [Concomitant]
     Indication: Product used for unknown indication
     Dosage: UNK, BID PRN
     Route: 061

REACTIONS (38)
  - Lobular breast carcinoma in situ [Not Recovered/Not Resolved]
  - Neuropathy peripheral [Unknown]
  - Immobile [Unknown]
  - Back pain [Unknown]
  - Arthralgia [Unknown]
  - Pain in extremity [Unknown]
  - Paraesthesia [Unknown]
  - Foot fracture [Unknown]
  - Tooth fracture [Unknown]
  - Peripheral swelling [Unknown]
  - Raynaud^s phenomenon [Unknown]
  - Dysmenorrhoea [Unknown]
  - Menopausal symptoms [Unknown]
  - Fatigue [Unknown]
  - Muscular weakness [Unknown]
  - Migraine [Unknown]
  - Edentulous [Unknown]
  - Asthenia [Unknown]
  - Malaise [Unknown]
  - Myalgia [Unknown]
  - Condition aggravated [Unknown]
  - Upper limb fracture [Unknown]
  - Blood chloride increased [Unknown]
  - Blood alkaline phosphatase increased [Unknown]
  - Blood alkaline phosphatase decreased [Unknown]
  - Vitamin D decreased [Unknown]
  - Vitamin B6 increased [Unknown]
  - Vitamin B6 decreased [Unknown]
  - Vitamin D deficiency [Unknown]
  - Blood magnesium increased [Unknown]
  - Blood thyroid stimulating hormone increased [Unknown]
  - Blood thyroid stimulating hormone decreased [Unknown]
  - Metabolic function test abnormal [Unknown]
  - Blood pressure decreased [Unknown]
  - Joint swelling [Unknown]
  - Meniscus injury [Unknown]
  - Headache [Unknown]
  - Lipohypertrophy [Unknown]

NARRATIVE: CASE EVENT DATE: 20160101
